FAERS Safety Report 16038044 (Version 4)
Quarter: 2019Q3

REPORT INFORMATION
  Report Type: Spontaneous
  Country: US (occurrence: US)
  Receive Date: 20190305
  Receipt Date: 20190726
  Transmission Date: 20191004
  Serious: Yes (Other)
  Sender: FDA-Public Use
  Company Number: US-ASTRAZENECA-2018SF48333

PATIENT
  Age: 22951 Day
  Sex: Female

DRUGS (21)
  1. PEPCID [Concomitant]
     Active Substance: FAMOTIDINE
  2. NALOXONE [Concomitant]
     Active Substance: NALOXONE
  3. PRILOSEC [Suspect]
     Active Substance: OMEPRAZOLE MAGNESIUM
     Route: 048
     Dates: start: 19980101
  4. PREVACID IV [Suspect]
     Active Substance: LANSOPRAZOLE
     Route: 065
     Dates: start: 200507, end: 200507
  5. ESTROVEN OTC [Concomitant]
  6. NEXIUM 24HR [Suspect]
     Active Substance: ESOMEPRAZOLE MAGNESIUM
     Route: 048
  7. PREVACID 24 HR [Suspect]
     Active Substance: LANSOPRAZOLE
     Route: 065
  8. PRILOSEC [Suspect]
     Active Substance: OMEPRAZOLE MAGNESIUM
     Route: 048
     Dates: start: 200507, end: 200507
  9. PREVACID [Suspect]
     Active Substance: LANSOPRAZOLE
     Route: 065
     Dates: start: 200507, end: 200507
  10. TORADOL [Concomitant]
     Active Substance: KETOROLAC TROMETHAMINE
  11. MORPHINE [Concomitant]
     Active Substance: MORPHINE
  12. PREVACID [Suspect]
     Active Substance: LANSOPRAZOLE
     Route: 065
     Dates: start: 19980101
  13. ALBUTEROL. [Concomitant]
     Active Substance: ALBUTEROL
  14. LEVAQUIN [Concomitant]
     Active Substance: LEVOFLOXACIN
  15. TYLENOL [Concomitant]
     Active Substance: ACETAMINOPHEN
  16. LEVAQUIN [Concomitant]
     Active Substance: LEVOFLOXACIN
  17. PRILOSEC OTC [Suspect]
     Active Substance: OMEPRAZOLE MAGNESIUM
     Route: 048
  18. METOPROLOL. [Concomitant]
     Active Substance: METOPROLOL
  19. NEXIUM [Suspect]
     Active Substance: ESOMEPRAZOLE MAGNESIUM
     Route: 048
  20. PREVACID IV [Suspect]
     Active Substance: LANSOPRAZOLE
     Route: 065
     Dates: start: 19980101, end: 200507
  21. PREVACID [Suspect]
     Active Substance: LANSOPRAZOLE
     Route: 065
     Dates: start: 19980101

REACTIONS (4)
  - Renal failure [Unknown]
  - Acute kidney injury [Not Recovered/Not Resolved]
  - Renal injury [Unknown]
  - Chronic kidney disease [Not Recovered/Not Resolved]

NARRATIVE: CASE EVENT DATE: 20150723
